FAERS Safety Report 24996680 (Version 5)
Quarter: 2025Q2

REPORT INFORMATION
  Report Type: Spontaneous
  Country: VE (occurrence: VE)
  Receive Date: 20250221
  Receipt Date: 20250528
  Transmission Date: 20250716
  Serious: No
  Sender: PFIZER
  Company Number: VE-PFIZER INC-202500036808

PATIENT
  Age: 14 Year
  Sex: Female

DRUGS (1)
  1. GENOTROPIN [Suspect]
     Active Substance: SOMATROPIN
     Indication: 22q11.2 deletion syndrome

REACTIONS (7)
  - Device delivery system issue [Unknown]
  - Device defective [Unknown]
  - Device information output issue [Unknown]
  - Product preparation issue [Unknown]
  - Wrong device used [Unknown]
  - Drug dose omission by device [Unknown]
  - Off label use [Unknown]
